FAERS Safety Report 6362834-6 (Version None)
Quarter: 2009Q3

REPORT INFORMATION
  Report Type: 
  Country: None (occurrence: None)
  Receive Date: 20090919
  Receipt Date: 20090609
  Transmission Date: 20100115
  Serious: No
  Sender: FDA-Public Use
  Company Number: US-ABBOTT-09P-163-0579219-00

PATIENT
  Age: 34 Year
  Sex: Female
  Weight: 77.18 kg

DRUGS (3)
  1. HUMIRA [Suspect]
     Indication: CROHN'S DISEASE
     Route: 058
     Dates: start: 20050801
  2. HUMIRA [Suspect]
     Route: 058
     Dates: start: 20080301
  3. HUMIRA [Suspect]
     Route: 058
     Dates: start: 20090101

REACTIONS (2)
  - PSORIASIS [None]
  - TREATMENT NONCOMPLIANCE [None]
